FAERS Safety Report 6576997-0 (Version None)
Quarter: 2010Q1

REPORT INFORMATION
  Report Type: 
  Country: None (occurrence: None)
  Receive Date: 20100210
  Receipt Date: 20100204
  Transmission Date: 20100710
  Serious: Yes (Other)
  Sender: FDA-Public Use
  Company Number: US-KINGPHARMUSA00001-K201000130

PATIENT
  Sex: Female

DRUGS (1)
  1. FLECTOR [Suspect]
     Route: 061

REACTIONS (1)
  - BLISTER [None]
